FAERS Safety Report 23310832 (Version 1)
Quarter: 2023Q4

REPORT INFORMATION
  Report Type: Spontaneous
  Country: US (occurrence: US)
  Receive Date: 20231218
  Receipt Date: 20231218
  Transmission Date: 20240110
  Serious: No
  Sender: FDA-Public Use
  Company Number: US-ALKEM LABORATORIES LIMITED-US-ALKEM-2023-12420

PATIENT

DRUGS (1)
  1. MYCOPHENOLATE MOFETIL [Suspect]
     Active Substance: MYCOPHENOLATE MOFETIL
     Indication: Product used for unknown indication
     Dosage: 25 GRAM (OVERDOSE)
     Route: 065

REACTIONS (6)
  - Decreased appetite [Unknown]
  - Headache [Unknown]
  - Leukopenia [Unknown]
  - Drug metabolite level high [Unknown]
  - Drug level increased [Unknown]
  - Overdose [Unknown]
